FAERS Safety Report 9233620 (Version 1)
Quarter: 2013Q2

REPORT INFORMATION
  Report Type: Spontaneous
  Country: US (occurrence: US)
  Receive Date: 20130416
  Receipt Date: 20130416
  Transmission Date: 20140414
  Serious: No
  Sender: FDA-Public Use
  Company Number: US-PFIZER INC-2013119409

PATIENT
  Sex: Male

DRUGS (5)
  1. ZOLOFT [Suspect]
     Dosage: UNK
  2. XANAX [Suspect]
     Dosage: UNK
  3. LEVOXYL [Suspect]
     Dosage: UNK
  4. LOVAZA [Suspect]
     Dosage: UNK
  5. WELLBUTRIN [Suspect]
     Dosage: UNK

REACTIONS (1)
  - Drug hypersensitivity [Unknown]
